FAERS Safety Report 19627838 (Version 1)
Quarter: 2021Q3

REPORT INFORMATION
  Report Type: Spontaneous
  Country: MY (occurrence: MY)
  Receive Date: 20210729
  Receipt Date: 20210729
  Transmission Date: 20211014
  Serious: No
  Sender: FDA-Public Use
  Company Number: MY-LUPIN PHARMACEUTICALS INC.-2021-12980

PATIENT
  Age: 64 Year
  Sex: Male

DRUGS (3)
  1. DEXTROSE. [Concomitant]
     Active Substance: DEXTROSE
     Indication: PROLIFERATIVE INJECTION THERAPY
     Dosage: UNK
     Route: 065
     Dates: start: 20200217
  2. LIGNOCAINE [Concomitant]
     Active Substance: LIDOCAINE HYDROCHLORIDE
     Indication: LOCAL ANAESTHESIA
     Dosage: UNK
     Route: 065
     Dates: start: 20200217
  3. TRIAMCINOLONE [Suspect]
     Active Substance: TRIAMCINOLONE
     Indication: PAIN MANAGEMENT
     Dosage: 20 MILLIGRAM, SINGLE
     Route: 052
     Dates: start: 20200217

REACTIONS (1)
  - Injection site discolouration [Recovered/Resolved]
